FAERS Safety Report 24016102 (Version 3)
Quarter: 2024Q3

REPORT INFORMATION
  Report Type: Spontaneous
  Country: US (occurrence: US)
  Receive Date: 20240626
  Receipt Date: 20240930
  Transmission Date: 20241016
  Serious: No
  Sender: PFIZER
  Company Number: US-PFIZER INC-202400197663

PATIENT
  Age: 6 Year
  Sex: Female

DRUGS (1)
  1. NGENLA [Suspect]
     Active Substance: SOMATROGON-GHLA
     Dosage: 11 MG, WEEKLY
     Route: 058

REACTIONS (3)
  - Wrong technique in device usage process [Unknown]
  - Injection site pain [Unknown]
  - Contusion [Unknown]
